FAERS Safety Report 8030190-3 (Version None)
Quarter: 2012Q1

REPORT INFORMATION
  Report Type: 
  Country: None (occurrence: None)
  Receive Date: 20120105
  Receipt Date: 20111222
  Transmission Date: 20120608
  Serious: Yes (Other)
  Sender: FDA-Public Use
  Company Number: TPA2011A07477

PATIENT
  Age: 64 Year
  Sex: Female

DRUGS (3)
  1. ACTOS [Suspect]
     Indication: TYPE 2 DIABETES MELLITUS
     Dosage: 15 MG, PER ORAL 30 MG, PER ORAL 45 MG, PER ORAL
     Route: 048
     Dates: start: 20011017, end: 20050113
  2. ACTOS [Suspect]
     Indication: TYPE 2 DIABETES MELLITUS
     Dosage: 15 MG, PER ORAL 30 MG, PER ORAL 45 MG, PER ORAL
     Route: 048
     Dates: start: 20070511, end: 20111012
  3. ACTOS [Suspect]
     Indication: TYPE 2 DIABETES MELLITUS
     Dosage: 15 MG, PER ORAL 30 MG, PER ORAL 45 MG, PER ORAL
     Route: 048
     Dates: start: 20050113, end: 20070511

REACTIONS (1)
  - BLADDER TRANSITIONAL CELL CARCINOMA [None]
